FAERS Safety Report 8241590-0 (Version None)
Quarter: 2012Q1

REPORT INFORMATION
  Report Type: 
  Country: None (occurrence: None)
  Receive Date: 20120328
  Receipt Date: 20120319
  Transmission Date: 20120608
  Serious: Yes (Other)
  Sender: FDA-Public Use
  Company Number: ES-ABBOTT-12P-144-0903974-00

PATIENT

DRUGS (1)
  1. HUMIRA [Suspect]
     Indication: MATERNAL EXPOSURE TIMING UNSPECIFIED
     Route: 064

REACTIONS (4)
  - MECONIUM IN AMNIOTIC FLUID [None]
  - FOETAL EXPOSURE DURING PREGNANCY [None]
  - NORMAL NEWBORN [None]
  - APGAR SCORE LOW [None]
